FAERS Safety Report 6148047-1 (Version None)
Quarter: 2009Q2

REPORT INFORMATION
  Report Type: 
  Country: None (occurrence: None)
  Receive Date: 20090408
  Receipt Date: 20090330
  Transmission Date: 20091009
  Serious: Yes (Disabling)
  Sender: FDA-Public Use
  Company Number: A0762343A

PATIENT
  Age: 79 Year
  Sex: Male
  Weight: 79.5 kg

DRUGS (8)
  1. RYTHMOL SR [Suspect]
     Indication: ATRIAL FIBRILLATION
     Dosage: 325MG TWICE PER DAY
     Route: 048
     Dates: start: 20050101
  2. SYNTHROID [Concomitant]
  3. CELEXA [Concomitant]
  4. DEPLIN [Concomitant]
  5. NIASPAN [Concomitant]
  6. XANAX [Concomitant]
  7. ASPIRIN [Concomitant]
  8. ACIPHEX [Concomitant]
     Route: 048
     Dates: start: 20000101

REACTIONS (12)
  - ASTHENIA [None]
  - BACK PAIN [None]
  - BALANCE DISORDER [None]
  - DYSKINESIA [None]
  - HYPOAESTHESIA [None]
  - INTERVERTEBRAL DISC PROTRUSION [None]
  - LUMBAR SPINAL STENOSIS [None]
  - MUSCULAR WEAKNESS [None]
  - NEUROPATHY PERIPHERAL [None]
  - PAIN [None]
  - PARAESTHESIA [None]
  - RADICULOPATHY [None]
